FAERS Safety Report 19106788 (Version 1)
Quarter: 2021Q2

REPORT INFORMATION
  Report Type: Spontaneous
  Country: US (occurrence: US)
  Receive Date: 20210407
  Receipt Date: 20210407
  Transmission Date: 20210717
  Serious: Yes (Hospitalization)
  Sender: FDA-Public Use
  Company Number: None

PATIENT
  Age: 4 Year
  Sex: Male

DRUGS (7)
  1. PULMOZYME [Suspect]
     Active Substance: DORNASE ALFA
     Indication: CYSTIC FIBROSIS
     Route: 055
     Dates: start: 20191029
  2. IPRATROPIUM [Concomitant]
     Active Substance: IPRATROPIUM
  3. CLINDAMYCIN. [Concomitant]
     Active Substance: CLINDAMYCIN
  4. NOVAFERRUM [Concomitant]
     Active Substance: ASCORBIC ACID\FOLIC ACID\IRON
  5. OMEPRAZOLE. [Concomitant]
     Active Substance: OMEPRAZOLE
  6. LACTULOSE. [Concomitant]
     Active Substance: LACTULOSE
  7. POLYETHEL GLYCOL [Concomitant]

REACTIONS (1)
  - Bronchoscopy [None]

NARRATIVE: CASE EVENT DATE: 20210406
